FAERS Safety Report 13847197 (Version 1)
Quarter: 2017Q3

REPORT INFORMATION
  Report Type: Spontaneous
  Country: US (occurrence: US)
  Receive Date: 20170808
  Receipt Date: 20170808
  Transmission Date: 20171127
  Serious: Yes (Death, Other)
  Sender: FDA-Public Use
  Company Number: US-BAUSCH-BL-2016-028754

PATIENT
  Age: 61 Year
  Sex: Male

DRUGS (4)
  1. BORTEZOMIB [Suspect]
     Active Substance: BORTEZOMIB
     Indication: HEPATIC AMYLOIDOSIS
     Dosage: 5 TREATMENTS OF CYBORD THERAPY
     Route: 065
  2. VITAMIN A [Suspect]
     Active Substance: VITAMIN A
     Indication: PRODUCT USED FOR UNKNOWN INDICATION
     Route: 065
  3. DEXAMETHASONE. [Suspect]
     Active Substance: DEXAMETHASONE
     Indication: HEPATIC AMYLOIDOSIS
     Dosage: 5 TREATMENTS OF CYBORD THERAPY
     Route: 065
  4. CYCLOPHOSPHAMIDE. [Suspect]
     Active Substance: CYCLOPHOSPHAMIDE
     Indication: HEPATIC AMYLOIDOSIS
     Dosage: 5 TREATMENTS OF CYBORD THERAPY
     Route: 065

REACTIONS (4)
  - Therapy non-responder [Unknown]
  - Cardiac arrest [Fatal]
  - Vitamin A increased [Recovered/Resolved]
  - Drug-induced liver injury [Unknown]
